FAERS Safety Report 8370941-1 (Version None)
Quarter: 2012Q2

REPORT INFORMATION
  Report Type: 
  Country: None (occurrence: None)
  Receive Date: 20120518
  Receipt Date: 20120503
  Transmission Date: 20120825
  Serious: Yes (Other)
  Sender: FDA-Public Use
  Company Number: GB-WATSON-2012-08348

PATIENT
  Age: 47 Year
  Sex: Female
  Weight: 83 kg

DRUGS (2)
  1. DICLOFENAC SODIUM [Concomitant]
     Indication: PAIN
     Dosage: 50 MG, TWICE OR THREE TIMES DAILY
  2. AMLODIPINE [Suspect]
     Indication: HYPERTENSION
     Dosage: 5 MG, DAILY
     Route: 048
     Dates: end: 20120418

REACTIONS (3)
  - SUICIDAL IDEATION [None]
  - BREAST TENDERNESS [None]
  - DEPRESSION [None]
